FAERS Safety Report 17185390 (Version 1)
Quarter: 2019Q4

REPORT INFORMATION
  Report Type: Spontaneous
  Country: US (occurrence: US)
  Receive Date: 20191220
  Receipt Date: 20191220
  Transmission Date: 20200122
  Serious: No
  Sender: FDA-Public Use
  Company Number: US-THERAPEUTICSMD-2019TMD04461

PATIENT
  Sex: Female

DRUGS (3)
  1. IMVEXXY [Suspect]
     Active Substance: ESTRADIOL
     Indication: ATROPHIC VULVOVAGINITIS
     Dosage: STARTER PACK
     Route: 067
     Dates: start: 201910
  2. UNSPECIFIED STEROID [Concomitant]
     Active Substance: UNSPECIFIED INGREDIENT
  3. OTHER UNSPECIFIED ESTRADIOL PRODUCT [Concomitant]

REACTIONS (4)
  - Product residue present [Recovering/Resolving]
  - Drug ineffective [Not Recovered/Not Resolved]
  - Vaginal discharge [Recovering/Resolving]
  - Vaginal haemorrhage [Unknown]

NARRATIVE: CASE EVENT DATE: 2019
